FAERS Safety Report 23485528 (Version 1)
Quarter: 2024Q1

REPORT INFORMATION
  Report Type: Spontaneous
  Country: US (occurrence: US)
  Receive Date: 20240206
  Receipt Date: 20240206
  Transmission Date: 20240410
  Serious: No
  Sender: FDA-Public Use
  Company Number: US-SA-2024SA036128

PATIENT
  Age: 60 Year
  Sex: Female

DRUGS (1)
  1. REZUROCK [Suspect]
     Active Substance: BELUMOSUDIL
     Dosage: 200 MG, QD
     Route: 048

REACTIONS (1)
  - Bone marrow disorder [Unknown]
